FAERS Safety Report 7583313-4 (Version None)
Quarter: 2011Q2

REPORT INFORMATION
  Report Type: 
  Country: None (occurrence: None)
  Receive Date: 20110630
  Receipt Date: 20110622
  Transmission Date: 20111010
  Serious: Yes (Death, Life-Threatening, Other)
  Sender: FDA-Public Use
  Company Number: FR-MPIJNJ-2010-06171

PATIENT

DRUGS (22)
  1. THALIDOMIDE [Concomitant]
     Indication: MULTIPLE MYELOMA
     Dosage: 200 MG, UNK
     Route: 048
     Dates: start: 20091029
  2. MELPHALAN HYDROCHLORIDE [Concomitant]
     Indication: MULTIPLE MYELOMA
     Dosage: 18 UNK, UNK
     Dates: start: 20091029
  3. VELCADE [Suspect]
     Indication: MULTIPLE MYELOMA
     Dosage: 1.3 MG, UNK
     Route: 042
     Dates: start: 20101011, end: 20101021
  4. PREDNISONE [Concomitant]
     Indication: MULTIPLE MYELOMA
     Dosage: 150 MG, UNK
     Route: 065
     Dates: start: 20091029
  5. DURAGESIC-100 [Concomitant]
     Indication: BONE PAIN
     Dosage: UNK
     Dates: start: 20100721
  6. ESCITALOPRAM OXALATE [Concomitant]
     Indication: HYPOKINESIA
     Dosage: UNK
     Dates: start: 20100901
  7. PREDNISONE [Concomitant]
     Dosage: 120 MG, UNK
     Dates: start: 20100819, end: 20100822
  8. MELPHALAN HYDROCHLORIDE [Concomitant]
     Dosage: 16 MG, UNK
     Dates: start: 20100819, end: 20100822
  9. TADENAN                            /00628801/ [Concomitant]
     Indication: BENIGN PROSTATIC HYPERPLASIA
     Dosage: UNK
     Dates: start: 20100504, end: 20100926
  10. BARIUM SULFATE [Concomitant]
     Indication: RENAL FAILURE
     Dosage: UNK
     Route: 042
     Dates: start: 20100910, end: 20101110
  11. ACETAMINOPHEN [Concomitant]
     Indication: BONE PAIN
     Dosage: UNK
     Dates: start: 20090801
  12. ACTIQ [Concomitant]
     Indication: BONE PAIN
     Dosage: UNK
     Dates: start: 20100721
  13. ANTITHROMBOTIC AGENTS [Concomitant]
     Indication: THROMBOSIS PROPHYLAXIS
  14. SYMBICORT [Concomitant]
     Indication: ASTHMA
     Dosage: UNK
     Dates: start: 20100415
  15. INNOHEP [Concomitant]
     Indication: ATRIAL FIBRILLATION
     Dosage: UNK
     Dates: start: 20100414, end: 20100929
  16. ATENOLOL [Concomitant]
     Indication: ATRIAL FIBRILLATION
     Dosage: UNK
     Dates: start: 20100304
  17. DIURETICS [Concomitant]
     Indication: GENERALISED OEDEMA
     Dosage: UNK
     Dates: start: 20101010, end: 20101001
  18. BARIUM SULFATE [Concomitant]
     Indication: HYPERTENSION
  19. DEXAMETHASONE [Suspect]
     Indication: MULTIPLE MYELOMA
     Dosage: 20 MG, UNK
     Route: 048
     Dates: start: 20101011, end: 20101021
  20. THALIDOMIDE [Concomitant]
     Dosage: 50 UNK, UNK
     Route: 048
     Dates: start: 20100819, end: 20100929
  21. LEVOFLOXACIN [Concomitant]
     Indication: LUNG INFECTION
     Dosage: UNK
     Dates: start: 20100906
  22. ATENOLOL [Concomitant]
     Indication: HYPERTENSION

REACTIONS (3)
  - LUNG INFECTION [None]
  - PULMONARY HAEMORRHAGE [None]
  - THROMBOCYTOPENIA [None]
